FAERS Safety Report 9395473 (Version 2)
Quarter: 2013Q3

REPORT INFORMATION
  Report Type: Spontaneous
  Country: JP (occurrence: JP)
  Receive Date: 20130711
  Receipt Date: 20130820
  Transmission Date: 20140515
  Serious: Yes (Hospitalization)
  Sender: FDA-Public Use
  Company Number: JP-EISAI INC-E2020-12605-SPO-JP

PATIENT
  Age: 78 Year
  Sex: Female

DRUGS (8)
  1. ARICEPT [Suspect]
     Indication: DEMENTIA ALZHEIMER^S TYPE
     Dosage: 8 MG
     Route: 048
     Dates: start: 20120130
  2. FOSAMAC [Suspect]
     Indication: OSTEOPOROSIS
     Dosage: UNKNOWN
     Route: 048
  3. CALCIUM ASPARTATE [Suspect]
     Indication: OSTEOPOROSIS
     Dosage: UNKNOWN
     Route: 048
  4. EDIROL [Suspect]
     Indication: OSTEOPOROSIS
     Dosage: UNKNOWN
     Route: 048
  5. SERMION [Concomitant]
     Indication: PROMOTION OF PERIPHERAL CIRCULATION
     Dosage: UNKNOWN
     Route: 048
     Dates: start: 20130107
  6. PLETAAL [Concomitant]
     Indication: PROMOTION OF PERIPHERAL CIRCULATION
     Dosage: UNKNOWN
     Route: 048
     Dates: start: 20130701
  7. BIO-THREE [Concomitant]
     Indication: CONSTIPATION
     Dosage: UNKNOWN
     Route: 048
     Dates: start: 20120213
  8. CELECOX [Concomitant]
     Indication: BACK PAIN
     Dosage: UNKNOWN
     Route: 048
     Dates: start: 20120514

REACTIONS (1)
  - Rhabdomyolysis [Recovering/Resolving]
